FAERS Safety Report 6129949-9 (Version None)
Quarter: 2009Q1

REPORT INFORMATION
  Report Type: 
  Country: None (occurrence: None)
  Receive Date: 20090323
  Receipt Date: 20090323
  Transmission Date: 20090719
  Serious: No
  Sender: FDA-Public Use
  Company Number: None

PATIENT
  Age: 79 Year
  Sex: Male

DRUGS (1)
  1. FENTANYL [Suspect]
     Indication: PAIN
     Dosage: 25MG PATCH EVERY 72 HOURS TRANDERMAL
     Route: 062
     Dates: start: 20090126, end: 20090127

REACTIONS (1)
  - CONFUSIONAL STATE [None]
